FAERS Safety Report 7977517-6 (Version None)
Quarter: 2011Q4

REPORT INFORMATION
  Report Type: 
  Country: None (occurrence: None)
  Receive Date: 20111214
  Receipt Date: 20111120
  Transmission Date: 20120403
  Serious: No
  Sender: FDA-Public Use
  Company Number: US-AMGEN-USASP2011061346

PATIENT
  Sex: Male

DRUGS (2)
  1. ENBREL [Suspect]
     Indication: PSORIASIS
  2. ENBREL [Suspect]
     Indication: ARTHRITIS
     Dosage: 50 MG, 2 TIMES/WK
     Dates: start: 20050113

REACTIONS (2)
  - MELANOCYTIC NAEVUS [None]
  - SKIN CANCER [None]
